FAERS Safety Report 11916377 (Version 3)
Quarter: 2016Q1

REPORT INFORMATION
  Report Type: Spontaneous
  Country: CN (occurrence: CN)
  Receive Date: 20160114
  Receipt Date: 20160219
  Transmission Date: 20160526
  Serious: Yes (Hospitalization, Other)
  Sender: FDA-Public Use
  Company Number: CN-ASTELLAS-2016JP000349

PATIENT
  Age: 42 Year
  Sex: Male

DRUGS (9)
  1. PROGRAF [Interacting]
     Active Substance: TACROLIMUS\TACROLIMUS ANHYDROUS
     Indication: RENAL TRANSPLANT
     Route: 048
     Dates: end: 20120414
  2. PROGRAF [Interacting]
     Active Substance: TACROLIMUS\TACROLIMUS ANHYDROUS
     Dosage: 4 MG IN THE MORNING AND 2 MG AT NIGHT
     Route: 048
     Dates: start: 20120424, end: 20120425
  3. ADALAT [Concomitant]
     Active Substance: NIFEDIPINE
     Indication: HYPERTENSION
     Route: 048
     Dates: start: 20120412
  4. PROGRAF [Interacting]
     Active Substance: TACROLIMUS\TACROLIMUS ANHYDROUS
     Route: 048
     Dates: start: 20120420, end: 20120423
  5. CELLCEPT [Suspect]
     Active Substance: MYCOPHENOLATE MOFETIL\MYCOPHENOLATE MOFETIL HYDROCHLORIDE
     Dosage: 0.5 G, TWICE DAILY
     Route: 048
     Dates: start: 20120421
  6. PROGRAF [Interacting]
     Active Substance: TACROLIMUS\TACROLIMUS ANHYDROUS
     Dosage: 1 MG IN THE MORNING AND 1 MG AT NIGHT
     Route: 048
     Dates: start: 20120426
  7. METOPROLOL. [Concomitant]
     Active Substance: METOPROLOL
     Indication: HYPERTENSION
     Route: 048
  8. CELLCEPT [Suspect]
     Active Substance: MYCOPHENOLATE MOFETIL\MYCOPHENOLATE MOFETIL HYDROCHLORIDE
     Indication: RENAL TRANSPLANT
     Dosage: 0.5 G, TWICE DAILY
     Route: 048
     Dates: end: 20120414
  9. VFEND [Interacting]
     Active Substance: VORICONAZOLE
     Indication: RENAL TRANSPLANT
     Dosage: 0.2 G, TWICE DAILY
     Route: 041
     Dates: start: 20120414, end: 20120422

REACTIONS (7)
  - Tongue discolouration [Recovering/Resolving]
  - Toxicity to various agents [Unknown]
  - Discomfort [Recovered/Resolved]
  - Lung infection [Recovering/Resolving]
  - Blood glucose increased [Unknown]
  - Mental disorder [Unknown]
  - Drug interaction [Unknown]

NARRATIVE: CASE EVENT DATE: 20120421
